FAERS Safety Report 22327084 (Version 1)
Quarter: 2023Q2

REPORT INFORMATION
  Report Type: Spontaneous
  Country: US (occurrence: US)
  Receive Date: 20230516
  Receipt Date: 20230516
  Transmission Date: 20230722
  Serious: No
  Sender: FDA-Public Use
  Company Number: US-RADIUS HEALTH INC.-2022US004711

PATIENT
  Sex: Female
  Weight: 40.181 kg

DRUGS (3)
  1. TYMLOS [Suspect]
     Active Substance: ABALOPARATIDE
     Indication: Senile osteoporosis
     Dosage: 80 MCG, QD
     Route: 058
  2. TYMLOS [Suspect]
     Active Substance: ABALOPARATIDE
     Indication: Nephrogenic anaemia
  3. PROCRIT [Concomitant]
     Active Substance: ERYTHROPOIETIN
     Indication: Product used for unknown indication

REACTIONS (6)
  - Decreased appetite [Unknown]
  - Weight decreased [Unknown]
  - Constipation [Unknown]
  - Pain [Unknown]
  - Abdominal pain [Unknown]
  - Nausea [Unknown]
